FAERS Safety Report 4906155-4 (Version None)
Quarter: 2006Q1

REPORT INFORMATION
  Report Type: 
  Country: None (occurrence: None)
  Receive Date: 20060207
  Receipt Date: 20060207
  Transmission Date: 20060701
  Serious: Yes (Hospitalization)
  Sender: FDA-Public Use
  Company Number: None

PATIENT
  Age: 84 Year
  Sex: Male
  Weight: 78.4723 kg

DRUGS (16)
  1. HUMULIN 70/30 [Suspect]
     Indication: DIABETES MELLITUS
     Dosage: 35 UNITS AMT 20 UNITS PM
     Dates: start: 20051020, end: 20051023
  2. HYDROCODONE 5/ ACETAMINOPHEN 500 MG [Concomitant]
  3. ACETAMINOPHEN [Concomitant]
  4. ALPRAZOLAM [Concomitant]
  5. ATENOLOL [Concomitant]
  6. BUMETANIDE [Concomitant]
  7. FUROSEMIDE [Concomitant]
  8. HC #1 [Concomitant]
  9. ZINC OXIDE [Concomitant]
  10. INSULIN NOVOLIN 70/30 (NPH/REG) [Concomitant]
  11. HUMULIN R [Concomitant]
  12. POTASSIUM CHLORIDE [Concomitant]
  13. MULTIVITAMIN/MINER THERAPEUT [Concomitant]
  14. DRESSING,RESTORE [Concomitant]
  15. INSULIN SYRG [Concomitant]
  16. OMEPRAZOLE [Concomitant]

REACTIONS (1)
  - HYPOGLYCAEMIA [None]
